FAERS Safety Report 10162467 (Version 4)
Quarter: 2014Q4

REPORT INFORMATION
  Report Type: Spontaneous
  Country: BR (occurrence: BR)
  Receive Date: 20140509
  Receipt Date: 20141022
  Transmission Date: 20150528
  Serious: Yes (Other)
  Sender: FDA-Public Use
  Company Number: BR-US-EMD SERONO, INC.-7004930

PATIENT
  Age: 49 Year
  Sex: Female

DRUGS (2)
  1. LIVIAL [Concomitant]
     Active Substance: TIBOLONE
     Indication: PRODUCT USED FOR UNKNOWN INDICATION
  2. REBIF [Suspect]
     Active Substance: INTERFERON BETA-1A
     Indication: RELAPSING-REMITTING MULTIPLE SCLEROSIS
     Route: 058
     Dates: start: 2001

REACTIONS (2)
  - Cataract [Not Recovered/Not Resolved]
  - Vision blurred [Unknown]

NARRATIVE: CASE EVENT DATE: 2009
